FAERS Safety Report 9498105 (Version 1)
Quarter: 2013Q3

REPORT INFORMATION
  Report Type: Spontaneous
  Country: US (occurrence: None)
  Receive Date: 20130903
  Receipt Date: 20130903
  Transmission Date: 20140515
  Serious: Yes (Hospitalization)
  Sender: FDA-Public Use
  Company Number: None

PATIENT
  Age: 49 Year
  Sex: Male
  Weight: 180 kg

DRUGS (27)
  1. FAMOTIDINE [Suspect]
     Indication: GASTROINTESTINAL DISORDER
     Dosage: 20MG (2ML) BID INTRAVENOUS
     Route: 042
     Dates: start: 20130816, end: 20130901
  2. FAMOTIDINE [Suspect]
     Indication: PROPHYLAXIS
     Dosage: 20MG (2ML) BID INTRAVENOUS
     Route: 042
     Dates: start: 20130816, end: 20130901
  3. ACETAMINOPHEN [Concomitant]
  4. ALBUMIN [Concomitant]
  5. ALBUTEROL-IPRATROPIUM [Concomitant]
  6. ALTEPLASE [Concomitant]
  7. ASPIRIN [Concomitant]
  8. BENZOCAINE [Concomitant]
  9. BISACODYL [Concomitant]
  10. CALAMINE [Concomitant]
  11. CEFAZOLIN [Concomitant]
  12. CHLORHEXIDINE [Concomitant]
  13. CISATRACURIUM [Concomitant]
  14. CISATRACURIUM [Concomitant]
  15. CLINDAMYCIN [Concomitant]
  16. DIATRIAZOATE MEG+SODIUM [Concomitant]
  17. DOCUSATE [Concomitant]
  18. ENOXAPARIN [Concomitant]
  19. FENTANYL [Concomitant]
  20. FUROSEMIDE [Concomitant]
  21. GENTAMICIN [Concomitant]
  22. HEPARIN [Concomitant]
  23. IOTHALAMATE MEGLUMINE [Concomitant]
  24. IOVERSOL [Concomitant]
  25. LABETALOL [Concomitant]
  26. LEVOFLOXACIN [Concomitant]
  27. METRONIDAZOLE [Concomitant]

REACTIONS (1)
  - Agranulocytosis [None]
